FAERS Safety Report 5597550-1 (Version None)
Quarter: 2008Q1

REPORT INFORMATION
  Report Type: 
  Country: None (occurrence: None)
  Receive Date: 20080121
  Receipt Date: 20080110
  Transmission Date: 20080703
  Serious: Yes (Hospitalization)
  Sender: FDA-Public Use
  Company Number: GB-ROCHE-540858

PATIENT
  Age: 67 Year
  Sex: Male
  Weight: 106 kg

DRUGS (13)
  1. ORLISTAT [Suspect]
     Indication: OBESITY
     Route: 048
     Dates: start: 20070618, end: 20071126
  2. MUCODYNE [Concomitant]
     Dosage: DRUG REPORTED AS NUCODYNE, STARTED 5 YEARS AGO
     Route: 048
  3. CLOPIDOGREL [Concomitant]
     Dosage: STARTED 10 YEARS AGO
     Route: 048
  4. OMEPRAZOLE [Concomitant]
     Dosage: STARTED 5 YEARS AGO
     Route: 048
  5. FERROUS SULFATE TAB [Concomitant]
     Dosage: DRUG REPORTED AS SERROUSSULPHATE, STARTED 5 YEARS AGO
     Route: 048
  6. LIPITOR [Concomitant]
     Dosage: STARTED 5 YEARS AGO
     Route: 048
  7. AMLODIPINE [Concomitant]
     Dosage: STARTED 10 YEARS AGO
     Route: 048
  8. BUMETANIDE [Concomitant]
     Dosage: STARTED 5 YEARS AGO
     Route: 048
  9. UNSPECIFIED DRUG [Concomitant]
     Dosage: DRUG REPORTED AS SPRAY, STARTED 10 YEARS AGO
  10. NICORANDIL [Concomitant]
     Dosage: STARTED 5 YEARS AGO
     Route: 048
  11. ASPIRIN [Concomitant]
     Dosage: STARTED 17 YEARS AGO
     Route: 048
  12. COMBIVENT [Concomitant]
     Dosage: STARTED 2 MONTHS AGO
     Route: 048
  13. BISOPROLOL FUMARATE [Concomitant]
     Dosage: STARTED 1 MONTH AGO
     Route: 048

REACTIONS (2)
  - CARDIAC FAILURE [None]
  - PERICARDIAL HAEMORRHAGE [None]
